FAERS Safety Report 10069637 (Version 2)
Quarter: 2014Q2

REPORT INFORMATION
  Report Type: Spontaneous
  Country: US (occurrence: US)
  Receive Date: 20140410
  Receipt Date: 20140515
  Transmission Date: 20141212
  Serious: No
  Sender: FDA-Public Use
  Company Number: US-SHIRE-US201401218

PATIENT
  Age: 19 Year
  Sex: Female
  Weight: 65.76 kg

DRUGS (3)
  1. VYVANSE [Suspect]
     Indication: ATTENTION DEFICIT/HYPERACTIVITY DISORDER
     Dosage: 50 MG, 1X/DAY:QD
     Route: 048
     Dates: start: 201301
  2. VYVANSE [Suspect]
     Dosage: 50 MG, 1X/DAY:QD (MAY TAKE TWO CAPSULES IF NEEDED)
     Route: 048
     Dates: start: 20140205
  3. JUNEL [Concomitant]
     Indication: CONTRACEPTION
     Dosage: 20 ?G, 1X/DAY:QD
     Route: 048
     Dates: start: 201401

REACTIONS (3)
  - Drug ineffective [Not Recovered/Not Resolved]
  - Prescribed overdose [Not Recovered/Not Resolved]
  - Product quality issue [Unknown]
